FAERS Safety Report 21331364 (Version 2)
Quarter: 2022Q4

REPORT INFORMATION
  Report Type: Report from Study
  Country: US (occurrence: US)
  Receive Date: 20220914
  Receipt Date: 20221115
  Transmission Date: 20230113
  Serious: Yes (Disabling, Other)
  Sender: FDA-Public Use
  Company Number: US-BRISTOL-MYERS SQUIBB COMPANY-2022-062779

PATIENT
  Age: 41 Year
  Sex: Male
  Weight: 86.1 kg

DRUGS (6)
  1. REVLIMID [Suspect]
     Active Substance: LENALIDOMIDE
     Indication: Plasma cell myeloma
     Route: 065
     Dates: start: 20210203
  2. REVLIMID [Suspect]
     Active Substance: LENALIDOMIDE
     Route: 065
     Dates: start: 20210203
  3. REVLIMID [Suspect]
     Active Substance: LENALIDOMIDE
     Dosage: 21 DAYS THEN 7 DAYS OFF
     Route: 065
     Dates: start: 20210203
  4. BLENREP [Suspect]
     Active Substance: BELANTAMAB MAFODOTIN-BLMF
     Indication: Product used for unknown indication
     Route: 065
  5. MOZOBIL [Concomitant]
     Active Substance: PLERIXAFOR
  6. ZARXIO [Concomitant]
     Active Substance: FILGRASTIM-SNDZ

REACTIONS (9)
  - Cellulitis [Unknown]
  - Memory impairment [Unknown]
  - Decreased appetite [Unknown]
  - Fatigue [Unknown]
  - Illness [Unknown]
  - Ocular toxicity [Unknown]
  - Reading disorder [Unknown]
  - Seasonal allergy [Unknown]
  - Asthenia [Unknown]

NARRATIVE: CASE EVENT DATE: 20221007
